FAERS Safety Report 13672822 (Version 1)
Quarter: 2017Q2

REPORT INFORMATION
  Report Type: Spontaneous
  Country: MX (occurrence: MX)
  Receive Date: 20170621
  Receipt Date: 20170621
  Transmission Date: 20170830
  Serious: Yes (Other)
  Sender: FDA-Public Use
  Company Number: MX-PFIZER INC-2017266629

PATIENT
  Age: 52 Year
  Sex: Female

DRUGS (1)
  1. PRISTIQ EXTENDED-RELEASE [Suspect]
     Active Substance: DESVENLAFAXINE SUCCINATE
     Indication: DEPRESSION
     Dosage: UNK
     Dates: end: 20170612

REACTIONS (6)
  - Crying [Unknown]
  - Anger [Unknown]
  - Feeling abnormal [Unknown]
  - Anxiety [Unknown]
  - Negative thoughts [Unknown]
  - Insomnia [Unknown]

NARRATIVE: CASE EVENT DATE: 201706
